FAERS Safety Report 14551615 (Version 2)
Quarter: 2022Q1

REPORT INFORMATION
  Report Type: Spontaneous
  Country: PT (occurrence: PT)
  Receive Date: 20180220
  Receipt Date: 20220317
  Transmission Date: 20220424
  Serious: Yes (Other)
  Sender: FDA-Public Use
  Company Number: PT-GLAXOSMITHKLINE-PT2018GSK005312

PATIENT
  Age: 17 Year

DRUGS (1)
  1. IBUPROFEN [Suspect]
     Active Substance: IBUPROFEN
     Indication: Product used for unknown indication
     Dosage: 40 MILLIGRAM
     Route: 048

REACTIONS (5)
  - Palmar erythema [Unknown]
  - Lip oedema [Unknown]
  - Hypoaesthesia [Unknown]
  - Oedema peripheral [Unknown]
  - Flushing [Unknown]
